FAERS Safety Report 9041421 (Version 1)
Quarter: 2013Q1

REPORT INFORMATION
  Report Type: Report from Study
  Country: US (occurrence: US)
  Receive Date: 20130129
  Receipt Date: 20130129
  Transmission Date: 20140127
  Serious: No
  Sender: FDA-Public Use
  Company Number: US-ABBOTT-12P-163-0902143-00

PATIENT
  Age: 45 Year
  Sex: Female
  Weight: 65.83 kg

DRUGS (15)
  1. HUMIRA 40 MG/0.8 ML PEN [Suspect]
     Indication: CROHN^S DISEASE
     Dates: start: 20111107, end: 20111107
  2. HUMIRA 40 MG/0.8 ML PEN [Suspect]
     Dates: start: 20111121, end: 20111121
  3. HUMIRA 40 MG/0.8 ML PEN [Suspect]
     Dates: start: 20111207, end: 20111207
  4. HUMIRA 40 MG/0.8 ML PEN [Suspect]
     Dates: start: 20111219, end: 20120102
  5. HUMIRA 40 MG/0.8 ML PEN [Suspect]
     Dates: start: 20120109
  6. PREDNISONE [Suspect]
     Indication: PRODUCT USED FOR UNKNOWN INDICATION
     Dates: end: 20111202
  7. PREDNISONE [Suspect]
  8. PREDNISONE [Suspect]
     Indication: CROHN^S DISEASE
     Dosage: VARIED DOSES IN PAST, AS HIGH AS 60 MG
  9. ELMIRON [Concomitant]
     Indication: CYSTITIS INTERSTITIAL
  10. ATARAX [Concomitant]
     Indication: CYSTITIS INTERSTITIAL
  11. PRILOSEC [Concomitant]
     Indication: GASTROOESOPHAGEAL REFLUX DISEASE
  12. CYMBALTA [Concomitant]
     Indication: PROPHYLAXIS
  13. TRAMADOL [Concomitant]
     Indication: PAIN
  14. HYOSCYAMINE [Concomitant]
     Indication: CROHN^S DISEASE
  15. ESTROGEN [Concomitant]
     Indication: HORMONE REPLACEMENT THERAPY

REACTIONS (10)
  - Abdominal pain [Recovering/Resolving]
  - Pain [Recovering/Resolving]
  - Muscle spasms [Recovering/Resolving]
  - Pyrexia [Recovering/Resolving]
  - Abdominal pain [Recovered/Resolved]
  - Diarrhoea [Recovered/Resolved]
  - Frequent bowel movements [Recovered/Resolved]
  - Vomiting [Recovered/Resolved]
  - Abdominal pain [Recovered/Resolved]
  - Drug ineffective [Recovered/Resolved]
